FAERS Safety Report 16851762 (Version 3)
Quarter: 2020Q3

REPORT INFORMATION
  Report Type: Spontaneous
  Country: US (occurrence: US)
  Receive Date: 20190925
  Receipt Date: 20200814
  Transmission Date: 20201102
  Serious: Yes (Other)
  Sender: FDA-Public Use
  Company Number: US-GILEAD-2019-0429561

PATIENT
  Sex: Male
  Weight: 94.33 kg

DRUGS (14)
  1. HYDROXYZINE [Concomitant]
     Active Substance: HYDROXYZINE HYDROCHLORIDE
  2. OMEPRAZOLE. [Concomitant]
     Active Substance: OMEPRAZOLE
  3. HYDROCHLOROTHIAZIDE. [Concomitant]
     Active Substance: HYDROCHLOROTHIAZIDE
  4. EXFORGE [Concomitant]
     Active Substance: AMLODIPINE BESYLATE\VALSARTAN
  5. ATRIPLA [Suspect]
     Active Substance: EFAVIRENZ\EMTRICITABINE\TENOFOVIR DISOPROXIL FUMARATE
     Indication: HIV INFECTION
     Dosage: UNK
     Route: 048
     Dates: start: 2005, end: 20140707
  6. ALLOPURINOL. [Concomitant]
     Active Substance: ALLOPURINOL
  7. FLUOXETINE [Concomitant]
     Active Substance: FLUOXETINE HYDROCHLORIDE
  8. QUETIAPINE [QUETIAPINE FUMARATE] [Concomitant]
     Active Substance: QUETIAPINE FUMARATE
  9. CLONIDINE. [Concomitant]
     Active Substance: CLONIDINE
  10. COMBIVENT [Concomitant]
     Active Substance: ALBUTEROL SULFATE\IPRATROPIUM BROMIDE
  11. VENLAFAXINE [Concomitant]
     Active Substance: VENLAFAXINE HYDROCHLORIDE
  12. LISINOPRIL. [Concomitant]
     Active Substance: LISINOPRIL
  13. TRIUMEQ [Concomitant]
     Active Substance: ABACAVIR SULFATE\DOLUTEGRAVIR SODIUM\LAMIVUDINE
  14. ATENOLOL. [Concomitant]
     Active Substance: ATENOLOL

REACTIONS (11)
  - Pain [Not Recovered/Not Resolved]
  - Quality of life decreased [Not Recovered/Not Resolved]
  - Decreased activity [Not Recovered/Not Resolved]
  - Anhedonia [Not Recovered/Not Resolved]
  - Emotional distress [Not Recovered/Not Resolved]
  - Gait disturbance [Unknown]
  - Anxiety [Not Recovered/Not Resolved]
  - Fear [Not Recovered/Not Resolved]
  - Asthenia [Unknown]
  - Renal failure [Recovered/Resolved]
  - Depression [Unknown]

NARRATIVE: CASE EVENT DATE: 2015
